FAERS Safety Report 6454617-3 (Version None)
Quarter: 2009Q4

REPORT INFORMATION
  Report Type: 
  Country: None (occurrence: None)
  Receive Date: 20091118
  Receipt Date: 20091104
  Transmission Date: 20100525
  Serious: Yes (Hospitalization)
  Sender: FDA-Public Use
  Company Number: 8054215

PATIENT
  Age: 31 Year
  Sex: Male
  Weight: 86.3 kg

DRUGS (4)
  1. CIMZIA [Suspect]
     Indication: CROHN'S DISEASE
     Dosage: 400 MG SC
     Route: 058
     Dates: start: 20090701
  2. PREDNISONE [Concomitant]
  3. CITALOPRAM HYDROBROMIDE [Concomitant]
  4. XANAX [Concomitant]

REACTIONS (2)
  - ABDOMINAL PAIN [None]
  - FATIGUE [None]
